FAERS Safety Report 25687937 (Version 1)
Quarter: 2025Q3

REPORT INFORMATION
  Report Type: Report from Study
  Country: US (occurrence: US)
  Receive Date: 20250817
  Receipt Date: 20250817
  Transmission Date: 20251021
  Serious: Yes (Other)
  Sender: ABBVIE
  Company Number: US-ABBVIE-6227118

PATIENT
  Age: 66 Year
  Sex: Female
  Weight: 90 kg

DRUGS (10)
  1. SKYRIZI [Suspect]
     Active Substance: RISANKIZUMAB-RZAA
     Indication: Colitis ulcerative
     Route: 058
     Dates: start: 20250108, end: 20250108
  2. SKYRIZI [Suspect]
     Active Substance: RISANKIZUMAB-RZAA
     Route: 058
     Dates: start: 20250305, end: 20250305
  3. SKYRIZI [Suspect]
     Active Substance: RISANKIZUMAB-RZAA
     Route: 058
     Dates: start: 20250430
  4. SKYRIZI [Suspect]
     Active Substance: RISANKIZUMAB-RZAA
     Indication: Product used for unknown indication
     Route: 042
     Dates: start: 20241015, end: 20241015
  5. SKYRIZI [Suspect]
     Active Substance: RISANKIZUMAB-RZAA
     Indication: Product used for unknown indication
     Route: 042
     Dates: start: 202411, end: 202411
  6. SKYRIZI [Suspect]
     Active Substance: RISANKIZUMAB-RZAA
     Indication: Product used for unknown indication
     Route: 042
     Dates: start: 202412, end: 202412
  7. IRON [Suspect]
     Active Substance: IRON
     Indication: Blood iron decreased
     Route: 042
     Dates: start: 20250209, end: 20250209
  8. IRON [Suspect]
     Active Substance: IRON
     Indication: Blood iron decreased
     Route: 042
     Dates: start: 20250204, end: 20250204
  9. OMEPRAZOLE [Concomitant]
     Active Substance: OMEPRAZOLE
     Indication: Product used for unknown indication
  10. PREDNISONE [Concomitant]
     Active Substance: PREDNISONE
     Indication: Product used for unknown indication
     Dates: start: 202407, end: 20241110

REACTIONS (10)
  - Oral discomfort [Not Recovered/Not Resolved]
  - Tooth fracture [Recovered/Resolved]
  - Cheilitis [Not Recovered/Not Resolved]
  - Primary biliary cholangitis [Unknown]
  - Abdominal discomfort [Not Recovered/Not Resolved]
  - Blood iron decreased [Recovered/Resolved]
  - Adverse drug reaction [Recovered/Resolved]
  - Pain in extremity [Recovered/Resolved]
  - Dysgeusia [Not Recovered/Not Resolved]
  - Hepatic enzyme increased [Not Recovered/Not Resolved]

NARRATIVE: CASE EVENT DATE: 20241101
